FAERS Safety Report 25207601 (Version 1)
Quarter: 2025Q2

REPORT INFORMATION
  Report Type: Spontaneous
  Country: DE (occurrence: DE)
  Receive Date: 20250417
  Receipt Date: 20250417
  Transmission Date: 20250717
  Serious: Yes (Hospitalization)
  Sender: MYLAN
  Company Number: DE-MYLANLABS-2025M1033285

PATIENT
  Age: 63 Year
  Sex: Male

DRUGS (12)
  1. HEPARIN [Suspect]
     Active Substance: HEPARIN SODIUM
     Indication: Anticoagulant therapy
  2. HEPARIN [Suspect]
     Active Substance: HEPARIN SODIUM
     Route: 065
  3. HEPARIN [Suspect]
     Active Substance: HEPARIN SODIUM
     Route: 065
  4. HEPARIN [Suspect]
     Active Substance: HEPARIN SODIUM
  5. FONDAPARINUX [Suspect]
     Active Substance: FONDAPARINUX
     Indication: Anticoagulant therapy
  6. FONDAPARINUX [Suspect]
     Active Substance: FONDAPARINUX
     Indication: Autoimmune heparin-induced thrombocytopenia
     Route: 065
  7. FONDAPARINUX [Suspect]
     Active Substance: FONDAPARINUX
     Route: 065
  8. FONDAPARINUX [Suspect]
     Active Substance: FONDAPARINUX
  9. ARGATROBAN [Suspect]
     Active Substance: ARGATROBAN
     Indication: Anticoagulant therapy
  10. ARGATROBAN [Suspect]
     Active Substance: ARGATROBAN
     Indication: Autoimmune heparin-induced thrombocytopenia
     Route: 065
  11. ARGATROBAN [Suspect]
     Active Substance: ARGATROBAN
     Route: 065
  12. ARGATROBAN [Suspect]
     Active Substance: ARGATROBAN

REACTIONS (4)
  - Autoimmune heparin-induced thrombocytopenia [Recovering/Resolving]
  - Pulmonary embolism [Recovering/Resolving]
  - Cardiac failure [Recovering/Resolving]
  - Drug ineffective [Unknown]
